FAERS Safety Report 8358324-1 (Version None)
Quarter: 2012Q2

REPORT INFORMATION
  Report Type: 
  Country: None (occurrence: None)
  Receive Date: 20120514
  Receipt Date: 20110420
  Transmission Date: 20120825
  Serious: No
  Sender: FDA-Public Use
  Company Number: US-ALEXION-A201100566

PATIENT
  Sex: Male

DRUGS (2)
  1. SOLIRIS [Suspect]
     Indication: PAROXYSMAL NOCTURNAL HAEMOGLOBINURIA
     Dosage: UNK
     Route: 042
  2. ANTIBIOTICS [Concomitant]
     Dosage: UNK

REACTIONS (4)
  - BLOOD LACTATE DEHYDROGENASE INCREASED [None]
  - MULTIPLE ALLERGIES [None]
  - SINUSITIS [None]
  - MIGRAINE [None]
